FAERS Safety Report 12485636 (Version 1)
Quarter: 2016Q2

REPORT INFORMATION
  Report Type: Spontaneous
  Country: US (occurrence: US)
  Receive Date: 20160621
  Receipt Date: 20160621
  Transmission Date: 20160815
  Serious: Yes (Other)
  Sender: FDA-Public Use
  Company Number: US-FRI-1000084264

PATIENT
  Age: 49 Year
  Sex: Male

DRUGS (4)
  1. AVYCAZ [Suspect]
     Active Substance: AVIBACTAM SODIUM\CEFTAZIDIME
     Indication: STAPHYLOCOCCAL BACTERAEMIA
  2. BLOOD PRESSURE PILL [Concomitant]
     Active Substance: UNSPECIFIED INGREDIENT
     Indication: HYPERTENSION
     Route: 048
  3. AVYCAZ [Suspect]
     Active Substance: AVIBACTAM SODIUM\CEFTAZIDIME
     Indication: KLEBSIELLA INFECTION
     Dosage: 7.5G
     Route: 042
     Dates: start: 20160302, end: 20160419
  4. AVYCAZ [Suspect]
     Active Substance: AVIBACTAM SODIUM\CEFTAZIDIME
     Indication: PNEUMONIA STAPHYLOCOCCAL

REACTIONS (2)
  - Off label use [Recovered/Resolved]
  - Neutropenia [Recovered/Resolved]

NARRATIVE: CASE EVENT DATE: 20160302
